FAERS Safety Report 15390543 (Version 2)
Quarter: 2018Q4

REPORT INFORMATION
  Report Type: Spontaneous
  Country: US (occurrence: US)
  Receive Date: 20180917
  Receipt Date: 20181009
  Transmission Date: 20190204
  Serious: Yes (Other)
  Sender: FDA-Public Use
  Company Number: US-ASTRAZENECA-2018SF10935

PATIENT
  Age: 22857 Day
  Sex: Female
  Weight: 81.6 kg

DRUGS (9)
  1. ADVAIR HFA [Concomitant]
     Active Substance: FLUTICASONE PROPIONATE\SALMETEROL XINAFOATE
  2. ALEVE [Concomitant]
     Active Substance: NAPROXEN SODIUM
  3. ZIRTEC [Concomitant]
     Active Substance: CETIRIZINE HYDROCHLORIDE
  4. XOLAIR [Concomitant]
     Active Substance: OMALIZUMAB
  5. VICODIN [Concomitant]
     Active Substance: ACETAMINOPHEN\HYDROCODONE BITARTRATE
  6. LOSARTAN. [Concomitant]
     Active Substance: LOSARTAN
  7. FASENRA [Suspect]
     Active Substance: BENRALIZUMAB
     Route: 058
     Dates: start: 201807
  8. FLORENT [Concomitant]
     Active Substance: SACCHAROMYCES CEREVISIAE
  9. NAPHCON [Concomitant]
     Active Substance: NAPHAZOLINE HYDROCHLORIDE

REACTIONS (7)
  - Headache [Recovered/Resolved]
  - Malaise [Recovered/Resolved]
  - Ventricular extrasystoles [Unknown]
  - Product administration error [Unknown]
  - Heart rate irregular [Unknown]
  - Diarrhoea [Recovered/Resolved]
  - Nausea [Recovered/Resolved]

NARRATIVE: CASE EVENT DATE: 20180618
